FAERS Safety Report 17810186 (Version 1)
Quarter: 2020Q2

REPORT INFORMATION
  Report Type: Spontaneous
  Country: US (occurrence: US)
  Receive Date: 20200521
  Receipt Date: 20200521
  Transmission Date: 20200714
  Serious: No
  Sender: FDA-Public Use
  Company Number: US-JNJFOC-20200507240

PATIENT
  Sex: Female

DRUGS (1)
  1. PEPCID AC [Suspect]
     Active Substance: FAMOTIDINE
     Indication: ANTACID THERAPY
     Dosage: ONE TABLET ONCE DAILY; PRODUCT START DATE: LAST WEEK, PRODUCT LAST ADMIN DATE: LAST SATURDAY 02-MAY-
     Route: 048

REACTIONS (1)
  - Drug ineffective [Unknown]
